FAERS Safety Report 21906847 (Version 1)
Quarter: 2023Q1

REPORT INFORMATION
  Report Type: Report from Study
  Country: US (occurrence: US)
  Receive Date: 20230125
  Receipt Date: 20230125
  Transmission Date: 20230418
  Serious: Yes (Other)
  Sender: FDA-Public Use
  Company Number: US-SA-SAC20230123000976

PATIENT
  Age: 51 Year
  Sex: Male

DRUGS (1)
  1. BELUMOSUDIL MESYLATE [Suspect]
     Active Substance: BELUMOSUDIL MESYLATE
     Indication: Chronic graft versus host disease
     Dosage: 200 MG, 1X
     Route: 048
     Dates: start: 20220901, end: 20230110

REACTIONS (5)
  - Scleroderma [Unknown]
  - Abdominal discomfort [Unknown]
  - Body temperature abnormal [Unknown]
  - Malaise [Unknown]
  - Drug ineffective [Unknown]
